FAERS Safety Report 22337050 (Version 1)
Quarter: 2023Q2

REPORT INFORMATION
  Report Type: Report from Study
  Country: US (occurrence: None)
  Receive Date: 20230518
  Receipt Date: 20230518
  Transmission Date: 20230721
  Serious: Yes (Hospitalization, Other)
  Sender: FDA-Public Use
  Company Number: US-ROCHE-3349424

PATIENT

DRUGS (13)
  1. RITUXAN [Suspect]
     Active Substance: RITUXIMAB
     Indication: Burkitt^s lymphoma
     Dosage: SUBSEQUENT DOSING ON 16-MAY-2016, 06-JUN-2016, 27-JUN-2016, 18-JUL-2016, 08-AUG-2016
     Route: 065
     Dates: start: 20160425
  2. DOXORUBICIN [Suspect]
     Active Substance: DOXORUBICIN
     Indication: Burkitt^s lymphoma
     Dosage: 4 DAYS?SUBSEQUENT DOSING ON 27-06-2016, 18-07-2016,08-08-2016
     Route: 065
     Dates: start: 20160425, end: 20160428
  3. DOXORUBICIN [Suspect]
     Active Substance: DOXORUBICIN
     Dosage: SUBSEQUENT DOSING ON 06-06-2016
     Route: 065
     Dates: start: 20160516, end: 20160520
  4. ETOPOSIDE [Suspect]
     Active Substance: ETOPOSIDE
     Indication: Burkitt^s lymphoma
     Dosage: SUBSEQUENT DOSING ON 27-06-2016, 18-07-2016, 08-08-2016
     Route: 065
     Dates: start: 20160425, end: 20160425
  5. ETOPOSIDE [Suspect]
     Active Substance: ETOPOSIDE
     Dosage: SUBSEQUENT DOSING ON 06-06-2016
     Route: 065
     Dates: start: 20160516
  6. VINCRISTINE [Suspect]
     Active Substance: VINCRISTINE
     Indication: Burkitt^s lymphoma
     Dosage: SUBSEQUENT DOSING ON  16-05-2016, 06-06-2016, 27-06-2016, 18-07-2016, 08-08-2016? 4 DAYS
     Route: 065
     Dates: start: 20160425
  7. CYCLOPHOSPHAMIDE [Suspect]
     Active Substance: CYCLOPHOSPHAMIDE
     Indication: Burkitt^s lymphoma
     Route: 065
     Dates: start: 20160429, end: 20160429
  8. CYCLOPHOSPHAMIDE [Suspect]
     Active Substance: CYCLOPHOSPHAMIDE
     Dosage: DOSING ON 10-06-2016
     Route: 065
     Dates: start: 20160520
  9. CYCLOPHOSPHAMIDE [Suspect]
     Active Substance: CYCLOPHOSPHAMIDE
     Route: 065
     Dates: start: 20160701
  10. CYCLOPHOSPHAMIDE [Suspect]
     Active Substance: CYCLOPHOSPHAMIDE
     Dosage: DOSING ON  12-08-2016
     Route: 065
     Dates: start: 20160722
  11. PREDNISONE [Suspect]
     Active Substance: PREDNISONE
     Indication: Burkitt^s lymphoma
     Dosage: SUBSEQUENT DOSING ON  16-05-2016, 06-06-2016, 27-06-2016,18-07-2016, 08-08-2016
     Route: 065
     Dates: start: 20160425
  12. PEGFILGRASTIM [Suspect]
     Active Substance: PEGFILGRASTIM
     Indication: Burkitt^s lymphoma
     Dosage: SUBSEQUENT DOSING ON 21-05-2016, 11-06-2016, 02-07-2016, 24-07-2016, 14-08-2016
     Route: 065
     Dates: start: 20160502
  13. METHOTREXATE [Suspect]
     Active Substance: METHOTREXATE
     Indication: Burkitt^s lymphoma
     Dosage: SUBSEQUENT DOSING ON 13-06-2016,28-06-2016, 05-07-2016, 19-07-2016, 22-07-2016, 09-08-2016, 09-08-20
     Route: 065
     Dates: start: 20160609

REACTIONS (5)
  - Platelet count decreased [Recovered/Resolved]
  - Stomatitis [Recovered/Resolved]
  - Hypotension [Recovered/Resolved]
  - Dehydration [Recovered/Resolved]
  - Oral pain [Recovered/Resolved]

NARRATIVE: CASE EVENT DATE: 20160619
